FAERS Safety Report 13674925 (Version 1)
Quarter: 2017Q2

REPORT INFORMATION
  Report Type: Spontaneous
  Country: US (occurrence: US)
  Receive Date: 20170621
  Receipt Date: 20170621
  Transmission Date: 20170830
  Serious: No
  Sender: FDA-Public Use
  Company Number: US-PERRIGO-16US018590

PATIENT
  Age: 48 Year
  Sex: Female
  Weight: 74.83 kg

DRUGS (15)
  1. ACETAMINOPHEN. [Concomitant]
     Active Substance: ACETAMINOPHEN
     Indication: HEADACHE
     Dosage: UNK
     Route: 065
  2. BIOTIN [Concomitant]
     Active Substance: BIOTIN
     Indication: ROUTINE HEALTH MAINTENANCE
     Dosage: UNK
     Route: 065
     Dates: start: 201607
  3. FAMOTIDINE. [Concomitant]
     Active Substance: FAMOTIDINE
     Indication: ANTACID THERAPY
     Dosage: UNK
     Route: 065
  4. FIBER [Concomitant]
     Active Substance: PSYLLIUM HUSK
     Indication: DIVERTICULUM
     Dosage: UNK, DAILY
     Route: 065
  5. CAFFEINE. [Concomitant]
     Active Substance: CAFFEINE
     Indication: PRODUCT USED FOR UNKNOWN INDICATION
     Dosage: UNK
     Route: 065
  6. RANITIDINE HYDROCHLORIDE. [Suspect]
     Active Substance: RANITIDINE HYDROCHLORIDE
     Indication: ABDOMINAL PAIN UPPER
     Dosage: 150 MG, QD
     Route: 048
     Dates: start: 2015, end: 2015
  7. RANITIDINE HYDROCHLORIDE. [Suspect]
     Active Substance: RANITIDINE HYDROCHLORIDE
     Indication: DYSPEPSIA
     Dosage: 150 MG, QD
     Route: 048
     Dates: start: 201604, end: 20160707
  8. VITAMIN D                          /00107901/ [Concomitant]
     Active Substance: ERGOCALCIFEROL
     Indication: DIVERTICULUM
     Dosage: UNK
     Route: 065
  9. VITAMIN C [Concomitant]
     Active Substance: ASCORBIC ACID
     Indication: CARPAL TUNNEL SYNDROME
     Dosage: UNK
     Route: 065
  10. BILBERRY                           /01397601/ [Concomitant]
     Active Substance: BILBERRY
     Indication: MACULAR DEGENERATION
     Dosage: UNK
     Route: 065
  11. CINNAMON                           /01647501/ [Concomitant]
     Active Substance: CINNAMON
     Indication: HYPERTENSION
     Dosage: 500 MG, UNK
     Route: 065
  12. ACETAMINOPHEN. [Concomitant]
     Active Substance: ACETAMINOPHEN
     Indication: PAIN
  13. OTHER ANTIDIARRHEALS [Concomitant]
     Indication: PROPHYLAXIS AGAINST DIARRHOEA
     Dosage: UNK
     Route: 065
  14. BROMELAIN [Concomitant]
     Active Substance: BROMELAINS
     Indication: CARPAL TUNNEL SYNDROME
     Dosage: UNK
     Route: 065
  15. VITAMIN B6 [Concomitant]
     Active Substance: PYRIDOXINE HYDROCHLORIDE
     Indication: CARPAL TUNNEL SYNDROME
     Dosage: UNK
     Route: 065
     Dates: start: 201607

REACTIONS (3)
  - Drug screen positive [Recovered/Resolved]
  - Incorrect drug administration duration [Recovered/Resolved]
  - Off label use [Recovered/Resolved]

NARRATIVE: CASE EVENT DATE: 2015
